FAERS Safety Report 7783241-5 (Version None)
Quarter: 2011Q3

REPORT INFORMATION
  Report Type: 
  Country: None (occurrence: None)
  Receive Date: 20110928
  Receipt Date: 20110919
  Transmission Date: 20111222
  Serious: Yes (Other)
  Sender: FDA-Public Use
  Company Number: US-JNJFOC-20061006073

PATIENT
  Sex: Male
  Weight: 72.58 kg

DRUGS (4)
  1. PAXIL [Concomitant]
  2. RISPERDAL [Suspect]
     Indication: DEPRESSION
  3. RISPERDAL [Suspect]
     Indication: BIPOLAR I DISORDER
  4. RISPERDAL [Suspect]
     Indication: SCHIZOAFFECTIVE DISORDER

REACTIONS (6)
  - NEUROPATHY PERIPHERAL [None]
  - WEIGHT INCREASED [None]
  - DIABETES MELLITUS [None]
  - ERECTILE DYSFUNCTION [None]
  - DIABETIC RETINOPATHY [None]
  - BLOOD TRIGLYCERIDES INCREASED [None]
